FAERS Safety Report 18314140 (Version 2)
Quarter: 2021Q1

REPORT INFORMATION
  Report Type: Report from Study
  Country: JP (occurrence: JP)
  Receive Date: 20200925
  Receipt Date: 20210326
  Transmission Date: 20210419
  Serious: Yes (Hospitalization, Other)
  Sender: FDA-Public Use
  Company Number: JP-JNJFOC-A-CH2018-166278

PATIENT
  Age: 59 Year
  Sex: Male

DRUGS (29)
  1. RIMATIL [Suspect]
     Active Substance: BUCILLAMINE
     Dosage: 100MG,50MG
     Route: 048
     Dates: start: 20170728, end: 20170907
  2. TOCOPHERYL NICOTINATE [Concomitant]
     Active Substance: TOCOPHERYL NICOTINATE, D-.ALPHA.
     Indication: SYSTEMIC SCLERODERMA
     Route: 048
     Dates: start: 20151202
  3. TRAMCET [Concomitant]
     Active Substance: ACETAMINOPHEN\TRAMADOL
  4. TRACLEER [Suspect]
     Active Substance: BOSENTAN
     Indication: SCLERODERMA ASSOCIATED DIGITAL ULCER
     Dosage: 62.5 MG, BID
     Route: 048
     Dates: start: 20160929, end: 20161029
  5. PREDNISOLONE. [Concomitant]
     Active Substance: PREDNISOLONE
     Route: 048
     Dates: start: 20180118, end: 20180214
  6. TOKISHIGYAKUKAGOSHUYUSHOKYOTO [Concomitant]
     Indication: SYSTEMIC SCLERODERMA
     Route: 048
     Dates: start: 20160316, end: 20170413
  7. PREDNISOLONE. [Concomitant]
     Active Substance: PREDNISOLONE
     Route: 048
     Dates: start: 20171109, end: 20180117
  8. PREDNISOLONE. [Concomitant]
     Active Substance: PREDNISOLONE
     Route: 048
     Dates: start: 20180524, end: 20180718
  9. CELECOX [Concomitant]
     Active Substance: CELECOXIB
     Indication: SYSTEMIC SCLERODERMA
     Route: 048
  10. ALFACALCIDOL [Concomitant]
     Active Substance: ALFACALCIDOL
     Indication: OSTEOPOROSIS
     Route: 048
  11. PREDNISOLONE. [Concomitant]
     Active Substance: PREDNISOLONE
     Indication: SYSTEMIC SCLERODERMA
     Route: 048
     Dates: end: 20170824
  12. CILOSTAZOL. [Concomitant]
     Active Substance: CILOSTAZOL
     Indication: SYSTEMIC SCLERODERMA
     Route: 048
  13. CRESTOR [Concomitant]
     Active Substance: ROSUVASTATIN CALCIUM
     Route: 048
     Dates: start: 20190221
  14. PREDNISOLONE. [Concomitant]
     Active Substance: PREDNISOLONE
     Route: 048
     Dates: start: 20180215, end: 20180523
  15. PREDNISOLONE. [Concomitant]
     Active Substance: PREDNISOLONE
     Route: 048
     Dates: start: 20180719
  16. RECALBON [Concomitant]
     Indication: OSTEOPOROSIS
     Route: 048
     Dates: start: 20160128
  17. BAYASPIRIN [Concomitant]
     Active Substance: ASPIRIN
     Indication: SYSTEMIC SCLERODERMA
     Route: 048
     Dates: end: 20160128
  18. PARIET [Concomitant]
     Active Substance: RABEPRAZOLE SODIUM
     Indication: CHRONIC GASTRITIS
     Route: 048
     Dates: start: 20151119
  19. PREDNISOLONE. [Concomitant]
     Active Substance: PREDNISOLONE
     Route: 048
     Dates: end: 20171108
  20. LIMAPROST ALFADEX [Concomitant]
     Active Substance: LIMAPROST
     Indication: SYSTEMIC SCLERODERMA
     Route: 048
  21. TRAMADOL/ACETAMINOPHEN [Concomitant]
     Active Substance: ACETAMINOPHEN\TRAMADOL
     Indication: SYSTEMIC SCLERODERMA
     Route: 048
     Dates: start: 20151119
  22. TRACLEER [Suspect]
     Active Substance: BOSENTAN
     Dosage: 187.5 MG, QD (125MG,62.5MG)
     Route: 048
     Dates: start: 20161030, end: 20161123
  23. TRACLEER [Suspect]
     Active Substance: BOSENTAN
     Dosage: 125 MG, BID
     Route: 048
     Dates: start: 20161124
  24. ADCIRCA [Suspect]
     Active Substance: TADALAFIL
     Indication: SYSTEMIC SCLERODERMA
     Dosage: 20 MG, QD
     Route: 048
     Dates: start: 20170817, end: 20170823
  25. RIMATIL [Suspect]
     Active Substance: BUCILLAMINE
     Indication: ARTHRITIS
     Dosage: 100 MG, QD
     Route: 048
     Dates: start: 20170629, end: 20170727
  26. NU?LOTAN [Concomitant]
     Active Substance: LOSARTAN POTASSIUM
     Indication: SYSTEMIC SCLERODERMA
     Route: 048
  27. TRAMADOL/ACETAMINOPHEN [Concomitant]
     Active Substance: ACETAMINOPHEN\TRAMADOL
     Route: 048
     Dates: start: 20170316
  28. CRESTOR [Concomitant]
     Active Substance: ROSUVASTATIN CALCIUM
     Indication: HYPERCHOLESTEROLAEMIA
     Route: 048
     Dates: end: 20190220
  29. BERAPROST SODIUM [Concomitant]
     Active Substance: BERAPROST SODIUM
     Indication: SYSTEMIC SCLERODERMA
     Route: 048
     Dates: start: 20151110

REACTIONS (17)
  - Cellulitis [Recovering/Resolving]
  - Aspartate aminotransferase increased [Recovered/Resolved]
  - Peroneal nerve palsy [Recovered/Resolved]
  - Spinal osteoarthritis [Recovering/Resolving]
  - Synovitis [Recovering/Resolving]
  - Hepatic function abnormal [Recovered/Resolved]
  - Limb discomfort [Not Recovered/Not Resolved]
  - Condition aggravated [Recovering/Resolving]
  - Arthralgia [Recovering/Resolving]
  - Anaemia [Not Recovered/Not Resolved]
  - Drug eruption [Recovering/Resolving]
  - Scleroderma associated digital ulcer [Recovering/Resolving]
  - Arterial disorder [Unknown]
  - Concomitant disease aggravated [Recovering/Resolving]
  - Pulmonary hypertension [Recovering/Resolving]
  - Cerebral infarction [Unknown]
  - Arthritis [Recovering/Resolving]

NARRATIVE: CASE EVENT DATE: 20170316
